FAERS Safety Report 5726895-7 (Version None)
Quarter: 2008Q2

REPORT INFORMATION
  Report Type: 
  Country: None (occurrence: None)
  Receive Date: 20080502
  Receipt Date: 20080421
  Transmission Date: 20081010
  Serious: Yes (Hospitalization)
  Sender: FDA-Public Use
  Company Number: US-PFIZER INC-2008036621

PATIENT
  Age: 75 Year
  Sex: Male

DRUGS (2)
  1. LITHIUM CARBONATE [Suspect]
  2. RISPERIDONE [Suspect]

REACTIONS (1)
  - ENCEPHALOPATHY [None]
